FAERS Safety Report 9613220 (Version 1)
Quarter: 2013Q4

REPORT INFORMATION
  Report Type: Spontaneous
  Country: US (occurrence: US)
  Receive Date: 20131010
  Receipt Date: 20131010
  Transmission Date: 20140711
  Serious: Yes (Other)
  Sender: FDA-Public Use
  Company Number: US-GLAXOSMITHKLINE-A1044730A

PATIENT
  Age: 53 Year
  Sex: Female

DRUGS (8)
  1. VOTRIENT [Suspect]
     Indication: LEIOMYOSARCOMA
     Dosage: 800MG PER DAY
     Route: 048
     Dates: start: 20130927
  2. CHOLESTYRAMINE [Concomitant]
  3. LEXAPRO [Concomitant]
  4. IMODIUM [Concomitant]
  5. IV SALINE [Concomitant]
  6. GAS X [Concomitant]
  7. ACETAMINOPHEN [Concomitant]
  8. POTASSIUM [Concomitant]
     Route: 042

REACTIONS (6)
  - Haematochezia [Not Recovered/Not Resolved]
  - Muscle spasms [Not Recovered/Not Resolved]
  - Abdominal distension [Not Recovered/Not Resolved]
  - Abdominal pain [Not Recovered/Not Resolved]
  - Diarrhoea [Not Recovered/Not Resolved]
  - Movement disorder [Not Recovered/Not Resolved]
